FAERS Safety Report 5035271-4 (Version None)
Quarter: 2006Q2

REPORT INFORMATION
  Report Type: 
  Country: None (occurrence: None)
  Receive Date: 20060627
  Receipt Date: 20060615
  Transmission Date: 20061013
  Serious: Yes (Death, Hospitalization)
  Sender: FDA-Public Use
  Company Number: ES-ROCHE-451835

PATIENT
  Age: 37 Year
  Sex: Male
  Weight: 95 kg

DRUGS (1)
  1. PEGASYS [Suspect]
     Dosage: FORMULATION: PREFILLED SYRINGES.
     Route: 065
     Dates: start: 20040212, end: 20040611

REACTIONS (7)
  - ABDOMINAL PAIN [None]
  - COLITIS [None]
  - GRANULOCYTOPENIA [None]
  - HEPATIC FAILURE [None]
  - SEPSIS [None]
  - SHOCK [None]
  - THROMBOCYTOPENIA [None]
